FAERS Safety Report 25572591 (Version 2)
Quarter: 2025Q3

REPORT INFORMATION
  Report Type: Spontaneous
  Country: US (occurrence: US)
  Receive Date: 20250717
  Receipt Date: 20250811
  Transmission Date: 20251021
  Serious: No
  Sender: ASTELLAS
  Company Number: US-ASTELLAS-2025-AER-037375

PATIENT
  Age: 58 Year
  Sex: Female

DRUGS (2)
  1. VEOZAH [Suspect]
     Active Substance: FEZOLINETANT
     Indication: Menopausal symptoms
     Route: 048
     Dates: start: 202404, end: 202405
  2. VEOZAH [Suspect]
     Active Substance: FEZOLINETANT
     Indication: Night sweats
     Route: 048
     Dates: start: 20250614, end: 20250618

REACTIONS (3)
  - Depression [Recovered/Resolved]
  - Wrong technique in product usage process [Unknown]
  - Depression [Recovering/Resolving]

NARRATIVE: CASE EVENT DATE: 20240501
